FAERS Safety Report 19516747 (Version 1)
Quarter: 2021Q3

REPORT INFORMATION
  Report Type: Spontaneous
  Country: HU (occurrence: HU)
  Receive Date: 20210711
  Receipt Date: 20210711
  Transmission Date: 20211014
  Serious: Yes (Hospitalization)
  Sender: FDA-Public Use
  Company Number: HU-JNJFOC-20210711795

PATIENT
  Age: 46 Year
  Sex: Male

DRUGS (12)
  1. PARACETAMOL [Concomitant]
     Active Substance: ACETAMINOPHEN
     Indication: PAIN
  2. INDOMETACIN [Concomitant]
     Active Substance: INDOMETHACIN
     Indication: PAIN
     Route: 054
  3. DUROGESIC [Suspect]
     Active Substance: FENTANYL
     Indication: PAIN
     Route: 062
  4. CONTROLOC [Concomitant]
     Active Substance: PANTOPRAZOLE SODIUM
     Indication: PROPHYLAXIS AGAINST GASTROINTESTINAL ULCER
     Route: 048
  5. OXYCONTIN [Concomitant]
     Active Substance: OXYCODONE HYDROCHLORIDE
     Indication: PAIN
     Route: 048
     Dates: start: 20210421, end: 20210424
  6. KREON [Concomitant]
     Active Substance: PANCRELIPASE
     Indication: DIGESTIVE ENZYME DECREASED
     Route: 048
  7. LAEVOLAC [Concomitant]
     Active Substance: LACTULOSE
     Indication: CONSTIPATION
     Route: 048
  8. CAFFEINE;CODEINE;METAMIZOLE;PARACETAMOL;PENTOBARBITAL [Concomitant]
     Indication: PAIN
     Dosage: 1 DF = 0,90 G METAMIZOL SODIUM MONOHYDRATE + 0,05 G CAFFEIN + 0,02873 G CODEIN PHOSPHATE HEMIHYDRATE
     Route: 054
  9. TRAMETINIB [Interacting]
     Active Substance: TRAMETINIB
     Indication: PANCREATIC CARCINOMA
     Dosage: 2 MG TWICE DAILY BETWEEN 16/04/2021 AND 29/04/29
     Route: 048
     Dates: start: 20210224, end: 20210429
  10. QUAMATEL [Concomitant]
     Active Substance: FAMOTIDINE
     Indication: PRODUCT USED FOR UNKNOWN INDICATION
     Route: 048
  11. IBRANCE [Interacting]
     Active Substance: PALBOCICLIB
     Indication: PANCREATIC CARCINOMA
     Route: 048
     Dates: start: 20210224, end: 20210408
  12. INSULIN [Concomitant]
     Active Substance: INSULIN NOS
     Indication: DIABETES MELLITUS
     Route: 058

REACTIONS (4)
  - Anaemia [Recovering/Resolving]
  - Labelled drug-drug interaction medication error [Recovered/Resolved]
  - Drug interaction [Recovered/Resolved]
  - Confusional state [Recovered/Resolved]

NARRATIVE: CASE EVENT DATE: 20210302
